FAERS Safety Report 8797623 (Version 1)
Quarter: 2012Q4

REPORT INFORMATION
  Report Type: 
  Country: JP (occurrence: JP)
  Receive Date: 20120920
  Receipt Date: 20120920
  Transmission Date: 20130627
  Serious: No
  Sender: FDA-Public Use
  Company Number: JP-JNJFOC-20120904070

PATIENT
  Sex: Male

DRUGS (5)
  1. DUROTEP MT [Suspect]
     Indication: NECK PAIN
     Route: 062
  2. DUROTEP MT [Suspect]
     Indication: NECK PAIN
     Dosage: 25 ug/hr + 12.5 ug/hr
     Route: 062
  3. DUROTEP MT [Suspect]
     Indication: MUSCULOSKELETAL PAIN
     Route: 062
  4. DUROTEP MT [Suspect]
     Indication: MUSCULOSKELETAL PAIN
     Dosage: 25 ug/hr + 12.5 ug/hr
     Route: 062
  5. CODEINE PHOSPHATE [Concomitant]
     Route: 065

REACTIONS (4)
  - Inadequate analgesia [Unknown]
  - Drug prescribing error [Unknown]
  - Nausea [Unknown]
  - Somnolence [Unknown]
